FAERS Safety Report 24730174 (Version 1)
Quarter: 2024Q4

REPORT INFORMATION
  Report Type: Report from Study
  Country: US (occurrence: US)
  Receive Date: 20241213
  Receipt Date: 20241213
  Transmission Date: 20250114
  Serious: Yes (Hospitalization)
  Sender: PAREXEL
  Company Number: US-STEMLINE THERAPEUTICS B.V.-2024-STML-US006577

PATIENT

DRUGS (1)
  1. ORSERDU [Suspect]
     Active Substance: ELACESTRANT
     Indication: Breast cancer metastatic
     Dosage: 345 MG, DAILY (CYCLE 1)
     Route: 048
     Dates: start: 20241203, end: 20241206

REACTIONS (2)
  - Ill-defined disorder [Unknown]
  - Scan abnormal [Unknown]

NARRATIVE: CASE EVENT DATE: 20241201
